FAERS Safety Report 22288291 (Version 2)
Quarter: 2023Q2

REPORT INFORMATION
  Report Type: Report from Study
  Country: FR (occurrence: None)
  Receive Date: 20230505
  Receipt Date: 20230525
  Transmission Date: 20230722
  Serious: Yes (Other)
  Sender: FDA-Public Use
  Company Number: FR-Merck Healthcare KGaA-9389505

PATIENT
  Age: 8 Decade
  Sex: Male

DRUGS (3)
  1. LEVOTHYROXINE [Suspect]
     Active Substance: LEVOTHYROXINE
     Indication: Product used for unknown indication
     Dosage: 162.5 (UNIT UNSPECIFIED)
  2. LEVOTHYROXINE [Suspect]
     Active Substance: LEVOTHYROXINE
     Dosage: 175 (UNIT UNSPECIFIED)
  3. LEVOTHYROXINE [Suspect]
     Active Substance: LEVOTHYROXINE
     Dosage: 188 (UNIT UNSPECIFIED)

REACTIONS (13)
  - Fatigue [Unknown]
  - Exophthalmos [Unknown]
  - Condition aggravated [Unknown]
  - Chills [Unknown]
  - Palpitations [Unknown]
  - Hyperthyroidism [Unknown]
  - Tremor [Unknown]
  - Nasopharyngitis [Unknown]
  - Overdose [Unknown]
  - Thyroglobulin increased [Not Recovered/Not Resolved]
  - Lymphadenopathy [Unknown]
  - Nodule [Unknown]
  - Blood thyroid stimulating hormone increased [Not Recovered/Not Resolved]
